FAERS Safety Report 24145220 (Version 1)
Quarter: 2024Q3

REPORT INFORMATION
  Report Type: Spontaneous
  Country: US (occurrence: US)
  Receive Date: 20240729
  Receipt Date: 20240729
  Transmission Date: 20241017
  Serious: No
  Sender: AJANTA PHARMA
  Company Number: US-AJANTA-2024AJA00079

PATIENT
  Age: 68 Year
  Sex: Female
  Weight: 182 kg

DRUGS (1)
  1. CHOLESTYRAMINE [Suspect]
     Active Substance: CHOLESTYRAMINE
     Indication: Irritable bowel syndrome
     Route: 048
     Dates: start: 202401

REACTIONS (7)
  - Dry mouth [Unknown]
  - Dry throat [Unknown]
  - Oral discomfort [Unknown]
  - Product solubility abnormal [Unknown]
  - Product use complaint [Unknown]
  - Product substitution issue [Unknown]
  - Product use in unapproved indication [Unknown]

NARRATIVE: CASE EVENT DATE: 20240101
